FAERS Safety Report 20845776 (Version 9)
Quarter: 2022Q3

REPORT INFORMATION
  Report Type: Spontaneous
  Country: US (occurrence: US)
  Receive Date: 20220518
  Receipt Date: 20220802
  Transmission Date: 20221027
  Serious: No
  Sender: FDA-Public Use
  Company Number: US-UNITED THERAPEUTICS-UNT-2022-010698

PATIENT
  Sex: Female

DRUGS (20)
  1. ORENITRAM [Suspect]
     Active Substance: TREPROSTINIL
     Indication: Pulmonary arterial hypertension
     Dosage: UNK
     Route: 048
     Dates: start: 20210802
  2. ORENITRAM [Suspect]
     Active Substance: TREPROSTINIL
     Dosage: UNK
     Route: 048
     Dates: start: 20210804
  3. ORENITRAM [Suspect]
     Active Substance: TREPROSTINIL
     Dosage: UNK
     Route: 048
     Dates: start: 20210806
  4. ORENITRAM [Suspect]
     Active Substance: TREPROSTINIL
     Dosage: UNK
     Route: 048
     Dates: start: 20211103
  5. ORENITRAM [Suspect]
     Active Substance: TREPROSTINIL
     Dosage: 15.75 MG, TID
     Route: 048
  6. ORENITRAM [Suspect]
     Active Substance: TREPROSTINIL
     Dosage: 5 MG, TID
     Route: 048
  7. ORENITRAM [Suspect]
     Active Substance: TREPROSTINIL
     Dosage: 5.25 MG, TID
     Route: 048
  8. ORENITRAM [Suspect]
     Active Substance: TREPROSTINIL
     Dosage: 13.5 MG, TID
     Route: 048
  9. ORENITRAM [Suspect]
     Active Substance: TREPROSTINIL
     Dosage: 15 MG, TID
     Route: 048
  10. ORENITRAM [Suspect]
     Active Substance: TREPROSTINIL
     Dosage: 13 MG, TID
     Route: 048
  11. ORENITRAM [Suspect]
     Active Substance: TREPROSTINIL
     Indication: Pulmonary arterial hypertension
     Dosage: UNK
     Route: 048
  12. ORENITRAM [Suspect]
     Active Substance: TREPROSTINIL
     Indication: Pulmonary arterial hypertension
     Dosage: UNK
     Route: 048
  13. ORENITRAM [Suspect]
     Active Substance: TREPROSTINIL
     Indication: Pulmonary arterial hypertension
     Dosage: UNK
     Route: 048
  14. ORENITRAM [Suspect]
     Active Substance: TREPROSTINIL
     Indication: Pulmonary arterial hypertension
     Dosage: UNK
     Route: 048
  15. TYVASO [Suspect]
     Active Substance: TREPROSTINIL
     Indication: Pulmonary arterial hypertension
     Dosage: UNK
     Dates: start: 20220506
  16. TYVASO [Suspect]
     Active Substance: TREPROSTINIL
     Dosage: 3 BREATHS (18 ?G), QID
  17. TYVASO [Suspect]
     Active Substance: TREPROSTINIL
     Dosage: 6 BREATHS (36 ?G), QID
  18. TYVASO [Suspect]
     Active Substance: TREPROSTINIL
     Dosage: 12 BREATHS (72 ?G), QID
  19. TYVASO [Suspect]
     Active Substance: TREPROSTINIL
     Dosage: 15 BREATHS (90 ?G), QID
  20. TYVASO [Suspect]
     Active Substance: TREPROSTINIL
     Dosage: 18 BREATHS (108 ?G), QID

REACTIONS (8)
  - Abdominal discomfort [Recovering/Resolving]
  - Nausea [Unknown]
  - Diarrhoea [Not Recovered/Not Resolved]
  - Cough [Unknown]
  - Retching [Recovered/Resolved]
  - Oropharyngeal pain [Unknown]
  - Off label use [Unknown]
  - Throat irritation [Unknown]

NARRATIVE: CASE EVENT DATE: 20220101
